FAERS Safety Report 21099946 (Version 5)
Quarter: 2022Q4

REPORT INFORMATION
  Report Type: Report from Study
  Country: US (occurrence: US)
  Receive Date: 20220719
  Receipt Date: 20221107
  Transmission Date: 20230112
  Serious: Yes (Other)
  Sender: FDA-Public Use
  Company Number: US-TAKEDA-2022TUS034029

PATIENT
  Age: 28 Year
  Sex: Female
  Weight: 62 kg

DRUGS (47)
  1. HUMAN IMMUNOGLOBULIN G [Suspect]
     Active Substance: HUMAN IMMUNOGLOBULIN G
     Indication: Mast cell activation syndrome
     Dosage: 10 GRAM, Q2WEEKS
     Route: 042
     Dates: start: 20220513
  2. HUMAN IMMUNOGLOBULIN G [Suspect]
     Active Substance: HUMAN IMMUNOGLOBULIN G
     Dosage: 15 GRAM, Q2WEEKS
     Route: 042
     Dates: start: 20220513
  3. HUMAN IMMUNOGLOBULIN G [Suspect]
     Active Substance: HUMAN IMMUNOGLOBULIN G
     Dosage: 15 MILLIGRAM, Q2WEEKS
     Route: 042
     Dates: start: 20220518
  4. HUMAN IMMUNOGLOBULIN G [Suspect]
     Active Substance: HUMAN IMMUNOGLOBULIN G
     Dosage: 15 GRAM, Q2WEEKS
     Route: 042
     Dates: start: 20220607
  5. PRIVIGEN [Suspect]
     Active Substance: HUMAN IMMUNOGLOBULIN G
     Indication: Mast cell activation syndrome
     Dosage: 15 GRAM, Q4WEEKS
     Route: 042
     Dates: start: 20220802
  6. BOTOX [Concomitant]
     Active Substance: ONABOTULINUMTOXINA
  7. UBRELVY [Concomitant]
     Active Substance: UBROGEPANT
  8. PREDNISONE [Concomitant]
     Active Substance: PREDNISONE
  9. LYRICA [Concomitant]
     Active Substance: PREGABALIN
  10. LIDOCAINE\PRILOCAINE [Concomitant]
     Active Substance: LIDOCAINE\PRILOCAINE
  11. DOXYCYCLINE HYCLATE [Concomitant]
     Active Substance: DOXYCYCLINE HYCLATE
     Dosage: UNK
  12. SAVELLA [Concomitant]
     Active Substance: MILNACIPRAN HYDROCHLORIDE
  13. CLONIDINE [Concomitant]
     Active Substance: CLONIDINE
     Dosage: UNK
  14. KETOROLAC TROMETHAMINE [Concomitant]
     Active Substance: KETOROLAC TROMETHAMINE
     Dosage: UNK
  15. PROGESTERONE [Concomitant]
     Active Substance: PROGESTERONE
     Dosage: UNK
  16. HYDROXYZINE HYDROCHLORIDE [Concomitant]
     Active Substance: HYDROXYZINE HYDROCHLORIDE
  17. CLARITIN [Concomitant]
     Active Substance: LORATADINE
  18. XYZAL [Concomitant]
     Active Substance: LEVOCETIRIZINE DIHYDROCHLORIDE
  19. CORLANOR [Concomitant]
     Active Substance: IVABRADINE HYDROCHLORIDE
  20. COMPAZINE [Concomitant]
     Active Substance: PROCHLORPERAZINE MALEATE
     Dosage: UNK
  21. FLUVOXAMINE MALEATE [Concomitant]
     Active Substance: FLUVOXAMINE MALEATE
  22. ACETAMINOPHEN [Concomitant]
     Active Substance: ACETAMINOPHEN
  23. DEXAMETHASONE [Concomitant]
     Active Substance: DEXAMETHASONE
  24. DIPHENHYDRAMINE HYDROCHLORIDE [Concomitant]
     Active Substance: DIPHENHYDRAMINE HYDROCHLORIDE
  25. EPINEPHRINE [Concomitant]
     Active Substance: EPINEPHRINE
  26. FAMOTIDINE [Concomitant]
     Active Substance: FAMOTIDINE
  27. HEPARIN [Concomitant]
     Active Substance: HEPARIN SODIUM
  28. SODIUM CHLORIDE [Concomitant]
     Active Substance: SODIUM CHLORIDE
  29. Lmx [Concomitant]
  30. SODIUM CHLORIDE [Concomitant]
     Active Substance: SODIUM CHLORIDE
  31. XOLAIR [Concomitant]
     Active Substance: OMALIZUMAB
  32. TRANEXAMIC ACID [Concomitant]
     Active Substance: TRANEXAMIC ACID
  33. XOPENEX [Concomitant]
     Active Substance: LEVALBUTEROL HYDROCHLORIDE
  34. ONDANSETRON HCL [Concomitant]
     Active Substance: ONDANSETRON HYDROCHLORIDE
  35. QVAR [Concomitant]
     Active Substance: BECLOMETHASONE DIPROPIONATE
  36. ADDERALL [Concomitant]
     Active Substance: AMPHETAMINE ASPARTATE\AMPHETAMINE SULFATE\DEXTROAMPHETAMINE SACCHARATE\DEXTROAMPHETAMINE SULFATE
  37. ELETRIPTAN [Concomitant]
     Active Substance: ELETRIPTAN
  38. KETOTIFEN FUMARATE [Concomitant]
     Active Substance: KETOTIFEN FUMARATE
  39. ZYRTEC [Concomitant]
     Active Substance: CETIRIZINE HYDROCHLORIDE
  40. CYMBALTA [Concomitant]
     Active Substance: DULOXETINE HYDROCHLORIDE
  41. PEPCID [Concomitant]
     Active Substance: FAMOTIDINE
  42. LINZESS [Concomitant]
     Active Substance: LINACLOTIDE
  43. VITAMIN D3 [Concomitant]
     Active Substance: CHOLECALCIFEROL
  44. PROLIA [Concomitant]
     Active Substance: DENOSUMAB
  45. NURTEC ODT [Concomitant]
     Active Substance: RIMEGEPANT SULFATE
  46. VYVANSE [Concomitant]
     Active Substance: LISDEXAMFETAMINE DIMESYLATE
  47. GABAPENTIN [Concomitant]
     Active Substance: GABAPENTIN

REACTIONS (11)
  - Kidney infection [Unknown]
  - Angioedema [Unknown]
  - Aphthous ulcer [Not Recovered/Not Resolved]
  - Oral discomfort [Recovered/Resolved]
  - Bone pain [Recovered/Resolved]
  - Pain in extremity [Recovered/Resolved]
  - Pain [Unknown]
  - Headache [Unknown]
  - Nausea [Unknown]
  - Off label use [Unknown]
  - Migraine [Unknown]

NARRATIVE: CASE EVENT DATE: 20220513
